FAERS Safety Report 15515764 (Version 10)
Quarter: 2018Q4

REPORT INFORMATION
  Report Type: Spontaneous
  Country: PT (occurrence: PT)
  Receive Date: 20181017
  Receipt Date: 20181213
  Transmission Date: 20190205
  Serious: Yes (Hospitalization, Other)
  Sender: FDA-Public Use
  Company Number: PT-AUROBINDO-AUR-APL-2018-049621

PATIENT
  Age: 58 Year
  Sex: Male

DRUGS (5)
  1. VALSARTAN. [Suspect]
     Active Substance: VALSARTAN
     Indication: HYPERTENSION
     Dosage: UNK
     Route: 065
  2. CITRAFLEET [Suspect]
     Active Substance: ANHYDROUS CITRIC ACID\MAGNESIUM OXIDE\SODIUM PICOSULFATE
     Indication: BOWEL PREPARATION
  3. MIRTAZAPINE FILM-COATED TABLET [Suspect]
     Active Substance: MIRTAZAPINE
     Indication: DEPRESSION
     Dosage: UNK
     Route: 048
  4. CITRAFLEET [Suspect]
     Active Substance: ANHYDROUS CITRIC ACID\MAGNESIUM OXIDE\SODIUM PICOSULFATE
     Indication: COLONOSCOPY
     Dosage: UNK
     Route: 065
  5. ATORVASTATIN [Suspect]
     Active Substance: ATORVASTATIN
     Indication: DYSLIPIDAEMIA
     Dosage: UNK
     Route: 065

REACTIONS (14)
  - Confusional state [Recovered/Resolved]
  - Hyporesponsive to stimuli [Recovered/Resolved]
  - Metabolic encephalopathy [Recovered/Resolved]
  - Altered state of consciousness [Recovered/Resolved]
  - Unresponsive to stimuli [Unknown]
  - Blood creatine phosphokinase increased [Unknown]
  - Drug interaction [Recovered/Resolved]
  - Disorientation [Recovered/Resolved]
  - Hyperreflexia [Recovering/Resolving]
  - Hyponatraemia [Recovering/Resolving]
  - Rhabdomyolysis [Recovering/Resolving]
  - Myoclonus [Recovered/Resolved]
  - Fatigue [Recovered/Resolved]
  - Myoglobin blood increased [Unknown]
